FAERS Safety Report 22644961 (Version 1)
Quarter: 2023Q2

REPORT INFORMATION
  Report Type: Spontaneous
  Country: US (occurrence: None)
  Receive Date: 20230625
  Receipt Date: 20230625
  Transmission Date: 20230721
  Serious: Yes (Disabling, Other)
  Sender: FDA-Public Use
  Company Number: None

PATIENT
  Age: 4 Year
  Sex: Female
  Weight: 24.75 kg

DRUGS (1)
  1. BACTRIM [Suspect]
     Active Substance: SULFAMETHOXAZOLE\TRIMETHOPRIM
     Dates: start: 20220201, end: 20220203

REACTIONS (4)
  - Urine abnormality [None]
  - Fatigue [None]
  - Urinary incontinence [None]
  - Urine ketone body present [None]

NARRATIVE: CASE EVENT DATE: 20220201
